FAERS Safety Report 6476957-4 (Version None)
Quarter: 2009Q4

REPORT INFORMATION
  Report Type: 
  Country: None (occurrence: None)
  Receive Date: 20091207
  Receipt Date: 20091123
  Transmission Date: 20100525
  Serious: No
  Sender: FDA-Public Use
  Company Number: US-B.I. PHARMACEUTICALS,INC./RIDGEFIELD-2009-BP-13655BP

PATIENT
  Sex: Female

DRUGS (3)
  1. ZANTAC 150 [Suspect]
     Indication: GASTROOESOPHAGEAL REFLUX DISEASE
     Dosage: 150 MG
     Route: 048
     Dates: start: 20090801, end: 20090801
  2. DICYCLOMINE [Suspect]
     Indication: GASTROOESOPHAGEAL REFLUX DISEASE
     Dates: start: 20090801, end: 20090801
  3. MEDICATION NOT FURTHER SPECIFIED [Concomitant]

REACTIONS (4)
  - DIARRHOEA [None]
  - EATING DISORDER [None]
  - VOMITING [None]
  - WEIGHT DECREASED [None]
